FAERS Safety Report 13623748 (Version 1)
Quarter: 2017Q2

REPORT INFORMATION
  Report Type: Report from Study
  Country: AT (occurrence: AT)
  Receive Date: 20170608
  Receipt Date: 20170608
  Transmission Date: 20170830
  Serious: Yes (Other)
  Sender: FDA-Public Use
  Company Number: AT-ROCHE-1943188

PATIENT
  Age: 68 Year
  Sex: Male

DRUGS (3)
  1. FENTANYL. [Concomitant]
     Active Substance: FENTANYL
     Indication: PAIN
     Route: 062
  2. ATEZOLIZUMAB [Suspect]
     Active Substance: ATEZOLIZUMAB
     Indication: TRANSITIONAL CELL CARCINOMA METASTATIC
     Route: 065
  3. MORAPID [Concomitant]
     Indication: PAIN
     Dosage: IF NEEDED
     Route: 048

REACTIONS (2)
  - Pain [Unknown]
  - Pathological fracture [Unknown]

NARRATIVE: CASE EVENT DATE: 20170526
